FAERS Safety Report 8436194-0 (Version None)
Quarter: 2012Q2

REPORT INFORMATION
  Report Type: 
  Country: None (occurrence: None)
  Receive Date: 20120614
  Receipt Date: 20120612
  Transmission Date: 20120825
  Serious: Yes (Other)
  Sender: FDA-Public Use
  Company Number: AU-ROCHE-1077799

PATIENT
  Sex: Female

DRUGS (3)
  1. HERCEPTIN [Suspect]
     Indication: METASTATIC NEOPLASM
  2. ZOMETA [Concomitant]
  3. ABRAXANE [Suspect]
     Indication: METASTATIC NEOPLASM

REACTIONS (2)
  - HEARING DISABILITY [None]
  - EAR DISORDER [None]
